FAERS Safety Report 5325955-2 (Version None)
Quarter: 2007Q2

REPORT INFORMATION
  Report Type: 
  Country: None (occurrence: None)
  Receive Date: 20070516
  Receipt Date: 20070319
  Transmission Date: 20071010
  Serious: Yes (Hospitalization)
  Sender: FDA-Public Use
  Company Number: A0643698A

PATIENT
  Age: 46 Year
  Sex: Male

DRUGS (3)
  1. EPZICOM [Suspect]
     Indication: HIV INFECTION
     Dosage: 1TAB PER DAY
     Route: 048
     Dates: end: 20070301
  2. LISINOPRIL [Concomitant]
  3. NEVIRAPINE [Concomitant]

REACTIONS (2)
  - PAIN [None]
  - PANCREATITIS [None]
